FAERS Safety Report 18472685 (Version 1)
Quarter: 2020Q4

REPORT INFORMATION
  Report Type: Spontaneous
  Country: US (occurrence: US)
  Receive Date: 20201105
  Receipt Date: 20201105
  Transmission Date: 20210114
  Serious: Yes (Hospitalization)
  Sender: FDA-Public Use
  Company Number: None

PATIENT
  Age: 68 Year
  Sex: Male

DRUGS (1)
  1. MEKINIST [Suspect]
     Active Substance: TRAMETINIB DIMETHYL SULFOXIDE
     Route: 048
     Dates: start: 20200914

REACTIONS (5)
  - Chills [None]
  - Therapy interrupted [None]
  - Pyrexia [None]
  - Tremor [None]
  - Colitis [None]

NARRATIVE: CASE EVENT DATE: 20201024
